FAERS Safety Report 7988932-9 (Version None)
Quarter: 2011Q4

REPORT INFORMATION
  Report Type: 
  Country: None (occurrence: None)
  Receive Date: 20111007
  Receipt Date: 20110819
  Transmission Date: 20120403
  Serious: No
  Sender: FDA-Public Use
  Company Number: 2011HGS-002429

PATIENT
  Age: 43 Year
  Sex: Female
  Weight: 54.4316 kg

DRUGS (4)
  1. PLAQUENIL [Concomitant]
  2. ACIPHEX [Concomitant]
  3. BENLYSTA [Suspect]
     Indication: SYSTEMIC LUPUS ERYTHEMATOSUS
     Dosage: 10 MG/KG, 1 IN 2 WK, INTRAVENOUS DRIP
     Route: 041
     Dates: start: 20110730, end: 20110805
  4. LEVOTHYROXINE SODIUM [Concomitant]

REACTIONS (7)
  - FATIGUE [None]
  - PAIN [None]
  - INFLUENZA LIKE ILLNESS [None]
  - MALAISE [None]
  - BRONCHITIS [None]
  - HEADACHE [None]
  - MYALGIA [None]
